FAERS Safety Report 8989986 (Version 1)
Quarter: 2012Q4

REPORT INFORMATION
  Report Type: 
  Country: IT (occurrence: IT)
  Receive Date: 20121228
  Receipt Date: 20121228
  Transmission Date: 20130627
  Serious: Yes (Death, Life-Threatening, Hospitalization)
  Sender: FDA-Public Use
  Company Number: IT-BAXTER-2012BAX029236

PATIENT
  Sex: Male

DRUGS (3)
  1. NAVELBINE [Suspect]
     Indication: NON-SMALL CELL LUNG CANCER
     Route: 042
  2. HOLOXAN [Suspect]
     Indication: NON-SMALL CELL LUNG CANCER
     Route: 042
  3. CISPLATIN [Suspect]
     Indication: NON-SMALL CELL LUNG CANCER
     Route: 042

REACTIONS (3)
  - Renal failure [Fatal]
  - Sepsis [Fatal]
  - Haematotoxicity [Not Recovered/Not Resolved]
